FAERS Safety Report 14920565 (Version 3)
Quarter: 2018Q2

REPORT INFORMATION
  Report Type: Spontaneous
  Country: US (occurrence: US)
  Receive Date: 20180521
  Receipt Date: 20180606
  Transmission Date: 20180711
  Serious: Yes (Hospitalization, Other)
  Sender: FDA-Public Use
  Company Number: US-SHIRE-US201818609

PATIENT
  Sex: Female
  Weight: 82.5 kg

DRUGS (1)
  1. GATTEX [Suspect]
     Active Substance: TEDUGLUTIDE\WATER
     Indication: SHORT-BOWEL SYNDROME
     Dosage: 0.1 ML, 1X/DAY:QD
     Route: 065
     Dates: start: 20180122

REACTIONS (1)
  - Neoplasm malignant [Not Recovered/Not Resolved]
